FAERS Safety Report 20733318 (Version 1)
Quarter: 2022Q2

REPORT INFORMATION
  Report Type: Report from Study
  Country: TW (occurrence: TW)
  Receive Date: 20220421
  Receipt Date: 20220421
  Transmission Date: 20220720
  Serious: Yes (Death, Other)
  Sender: FDA-Public Use
  Company Number: TW-ALS-000710

PATIENT

DRUGS (1)
  1. METFORMIN [Suspect]
     Active Substance: METFORMIN HYDROCHLORIDE
     Indication: Product use in unapproved indication
     Route: 065

REACTIONS (2)
  - Death [Fatal]
  - Product use in unapproved indication [Unknown]
